FAERS Safety Report 4304096-7 (Version None)
Quarter: 2004Q1

REPORT INFORMATION
  Report Type: 
  Country: None (occurrence: None)
  Receive Date: 20040223
  Receipt Date: 20031212
  Transmission Date: 20041129
  Serious: No
  Sender: FDA-Public Use
  Company Number: PHEH2003US11378

PATIENT
  Age: 86 Year
  Sex: Female

DRUGS (8)
  1. ZELNORM [Suspect]
     Indication: IRRITABLE BOWEL SYNDROME
     Dosage: 2 MG, BID, ORAL
     Route: 048
     Dates: start: 20031210
  2. PANTOPRAZOLE [Concomitant]
  3. COZAAR [Concomitant]
  4. HYDROCHLOROTHIAZIDE [Concomitant]
  5. BUSPIRONE HCL [Concomitant]
  6. TOPROL-XL [Concomitant]
  7. DONEPEZIL HCL [Concomitant]
  8. MIRALAX [Concomitant]

REACTIONS (8)
  - ABDOMINAL PAIN [None]
  - ARTHRALGIA [None]
  - BURNING SENSATION [None]
  - DIZZINESS [None]
  - DYSPNOEA [None]
  - HEADACHE [None]
  - PHARYNGOLARYNGEAL PAIN [None]
  - VISION BLURRED [None]
